FAERS Safety Report 11002470 (Version 2)
Quarter: 2015Q2

REPORT INFORMATION
  Report Type: Spontaneous
  Country: US (occurrence: US)
  Receive Date: 20150408
  Receipt Date: 20150515
  Transmission Date: 20150821
  Serious: No
  Sender: FDA-Public Use
  Company Number: US-GLAXOSMITHKLINE-US2015045636

PATIENT
  Age: 56 Year
  Sex: Male

DRUGS (4)
  1. NICODERM CQ [Suspect]
     Active Substance: NICOTINE
     Dosage: UNK
     Dates: start: 20150420
  2. NICODERM CQ [Suspect]
     Active Substance: NICOTINE
     Dosage: UNK
  3. NICODERM CQ [Suspect]
     Active Substance: NICOTINE
     Indication: SMOKING CESSATION THERAPY
     Dosage: 21 MG, UNK
  4. NICODERM CQ [Suspect]
     Active Substance: NICOTINE
     Indication: SMOKING CESSATION THERAPY
     Dosage: 21 MG, UNK
     Dates: start: 20150319, end: 20150406

REACTIONS (7)
  - Confusional state [Recovered/Resolved]
  - Paraesthesia [Recovered/Resolved]
  - Anxiety [Recovered/Resolved]
  - Abnormal dreams [Recovered/Resolved]
  - Formication [Recovered/Resolved]
  - Tremor [Recovered/Resolved]
  - Nervousness [Recovered/Resolved]
